FAERS Safety Report 4564336-6 (Version None)
Quarter: 2005Q1

REPORT INFORMATION
  Report Type: 
  Country: None (occurrence: None)
  Receive Date: 20050128
  Receipt Date: 20040706
  Transmission Date: 20050727
  Serious: Yes (Hospitalization)
  Sender: FDA-Public Use
  Company Number: US-GLAXOSMITHKLINE-A0520850A

PATIENT
  Sex: Female

DRUGS (2)
  1. PAXIL [Suspect]
     Indication: DEPRESSION
     Route: 048
     Dates: start: 20000112
  2. UNISOM [Suspect]

REACTIONS (3)
  - DRUG WITHDRAWAL SYNDROME [None]
  - OVERDOSE [None]
  - SUICIDE ATTEMPT [None]
